FAERS Safety Report 8582698 (Version 5)
Quarter: 2012Q4

REPORT INFORMATION
  Report Type: 
  Country: IN (occurrence: IN)
  Receive Date: 20120529
  Receipt Date: 20120912
  Transmission Date: 20130627
  Serious: Yes (Death, Hospitalization, Other)
  Sender: FDA-Public Use
  Company Number: IN-PFIZER INC-2012125420

PATIENT
  Age: 50 Year
  Sex: Male

DRUGS (1)
  1. SUTENT [Suspect]
     Indication: METASTATIC RENAL CELL CARCINOMA
     Dosage: 50 mg, 1x/day
     Route: 048
     Dates: start: 20120301, end: 20120627

REACTIONS (12)
  - Death [Fatal]
  - Loss of consciousness [Not Recovered/Not Resolved]
  - Coma [Recovered/Resolved]
  - Dyspraxia [Not Recovered/Not Resolved]
  - Pyrexia [Recovered/Resolved]
  - Chills [Recovered/Resolved]
  - Asthenia [Not Recovered/Not Resolved]
  - Sensory loss [Recovered/Resolved]
  - Rash [Recovering/Resolving]
  - Mouth ulceration [Recovering/Resolving]
  - Disease progression [Not Recovered/Not Resolved]
  - Metastatic renal cell carcinoma [Not Recovered/Not Resolved]
